FAERS Safety Report 8862548 (Version 3)
Quarter: 2012Q4

REPORT INFORMATION
  Report Type: 
  Country: DE (occurrence: DE)
  Receive Date: 20121026
  Receipt Date: 20121119
  Transmission Date: 20130627
  Serious: Yes (Hospitalization, Other)
  Sender: FDA-Public Use
  Company Number: DE-JNJFOC-20121012258

PATIENT
  Age: 73 Year
  Sex: Female

DRUGS (3)
  1. REGAINE FRAUEN [Suspect]
     Route: 061
  2. REGAINE FRAUEN [Suspect]
     Indication: ALOPECIA
     Route: 061
     Dates: start: 20120920
  3. LISINOPRIL [Concomitant]
     Indication: HYPERTENSION
     Route: 065

REACTIONS (5)
  - Anaphylactic shock [Recovered/Resolved]
  - Cardiovascular disorder [Recovered/Resolved]
  - Vertigo [Recovered/Resolved]
  - Dermatitis allergic [Not Recovered/Not Resolved]
  - Skin exfoliation [Not Recovered/Not Resolved]
